FAERS Safety Report 4354370-3 (Version None)
Quarter: 2004Q2

REPORT INFORMATION
  Report Type: 
  Country: None (occurrence: None)
  Receive Date: 20040506
  Receipt Date: 20040428
  Transmission Date: 20050107
  Serious: Yes (Hospitalization)
  Sender: FDA-Public Use
  Company Number: FR-MERCK-0404FRA00091

PATIENT
  Age: 54 Year
  Sex: Male

DRUGS (4)
  1. ACETAMINOPHEN [Concomitant]
     Indication: HEADACHE
     Route: 048
     Dates: end: 20030511
  2. LORAZEPAM [Concomitant]
     Indication: INSOMNIA
     Route: 048
     Dates: end: 20030511
  3. MINOCYCLINE [Concomitant]
     Route: 048
  4. VIOXX [Suspect]
     Indication: TENDONITIS
     Route: 048
     Dates: start: 20030427, end: 20030507

REACTIONS (6)
  - ALANINE AMINOTRANSFERASE INCREASED [None]
  - ASPARTATE AMINOTRANSFERASE INCREASED [None]
  - DRUG ERUPTION [None]
  - HEPATITIS CHOLESTATIC [None]
  - PAIN [None]
  - SKIN DESQUAMATION [None]
